FAERS Safety Report 23268085 (Version 1)
Quarter: 2023Q4

REPORT INFORMATION
  Report Type: Spontaneous
  Country: US (occurrence: US)
  Receive Date: 20231206
  Receipt Date: 20231206
  Transmission Date: 20240110
  Serious: No
  Sender: FDA-Public Use
  Company Number: US-BRAINTREE LABORATORIES, INC.-2023BTE00741

PATIENT
  Age: 83 Year
  Sex: Female
  Weight: 104.31 kg

DRUGS (8)
  1. SUTAB [Suspect]
     Active Substance: MAGNESIUM SULFATE\POTASSIUM CHLORIDE\SODIUM SULFATE
     Indication: Colonoscopy
     Dosage: 2 X 12 TABLETS, 1X
     Route: 048
     Dates: start: 20231017, end: 20231017
  2. LEVOTHYROXINE [Concomitant]
     Active Substance: LEVOTHYROXINE
     Dosage: 50 MG, 1X/DAY
  3. OLMESARTAN [Concomitant]
     Active Substance: OLMESARTAN
     Dosage: 5 MG, DAILY
  4. WOMEN^S MULTIVITAMIN [Concomitant]
  5. NORTRIPTYLINE [Concomitant]
     Active Substance: NORTRIPTYLINE
     Dosage: 20 MG, DAILY
  6. VITAMIN D3 [Concomitant]
     Active Substance: CHOLECALCIFEROL
     Dosage: 2000 MG, DAILY
  7. HYDROCODONE [Concomitant]
     Active Substance: HYDROCODONE
     Dosage: HALF TABLET, PRN (AS NEEDED)
  8. T [Concomitant]
     Dosage: 1 DROP AT BEDTIME

REACTIONS (11)
  - Feeling abnormal [Not Recovered/Not Resolved]
  - Back pain [Recovering/Resolving]
  - Anal incontinence [Recovered/Resolved]
  - Fatigue [Not Recovered/Not Resolved]
  - Sluggishness [Not Recovered/Not Resolved]
  - Muscle spasms [Not Recovered/Not Resolved]
  - Constipation [Not Recovered/Not Resolved]
  - Drug ineffective [Not Recovered/Not Resolved]
  - Abdominal pain [Recovering/Resolving]
  - Discomfort [Recovering/Resolving]
  - Nausea [Recovered/Resolved]

NARRATIVE: CASE EVENT DATE: 20231001
